FAERS Safety Report 7065196-4 (Version None)
Quarter: 2010Q4

REPORT INFORMATION
  Report Type: 
  Country: None (occurrence: None)
  Receive Date: 20101027
  Receipt Date: 20101015
  Transmission Date: 20110411
  Serious: Yes (Hospitalization, Other)
  Sender: FDA-Public Use
  Company Number: US-ROCHE-717496

PATIENT
  Sex: Male
  Weight: 40.8 kg

DRUGS (1)
  1. ACCUTANE [Suspect]
     Indication: ACNE
     Route: 065
     Dates: start: 19830901, end: 19831201

REACTIONS (7)
  - ABDOMINAL ABSCESS [None]
  - ANAL FISTULA [None]
  - CROHN'S DISEASE [None]
  - ILEAL STENOSIS [None]
  - INFLAMMATORY BOWEL DISEASE [None]
  - INTESTINAL FISTULA [None]
  - INTESTINAL PERFORATION [None]
